FAERS Safety Report 9145925 (Version 2)
Quarter: 2013Q2

REPORT INFORMATION
  Report Type: Spontaneous
  Country: IT (occurrence: IT)
  Receive Date: 20130307
  Receipt Date: 20130401
  Transmission Date: 20140414
  Serious: Yes (Life-Threatening, Hospitalization)
  Sender: FDA-Public Use
  Company Number: IT-ASTRAZENECA-2013SE14599

PATIENT
  Age: 18946 Day
  Sex: Female

DRUGS (7)
  1. SEROQUEL [Suspect]
     Indication: DRUG ABUSE
     Route: 048
     Dates: start: 20130123, end: 20130123
  2. REMERON [Suspect]
     Indication: DRUG ABUSE
     Route: 048
     Dates: start: 20130123, end: 20130123
  3. NOZINAN [Suspect]
     Indication: DRUG ABUSE
     Route: 048
     Dates: start: 20130123, end: 20130123
  4. FELISON [Suspect]
     Indication: DRUG ABUSE
     Route: 048
     Dates: start: 20130123, end: 20130123
  5. ALLOPURINOL [Concomitant]
  6. LAMICTAL [Concomitant]
     Dosage: 100 MG CHEWABLE DISPERSIBLE TABLETS
  7. FERRO-GRAD [Concomitant]
     Dosage: 105 MG PROLONGED RELEASE TABLETS

REACTIONS (3)
  - Drug abuse [Recovering/Resolving]
  - Loss of consciousness [Recovering/Resolving]
  - Suicide attempt [Unknown]
